FAERS Safety Report 8172730-X (Version None)
Quarter: 2012Q1

REPORT INFORMATION
  Report Type: 
  Country: None (occurrence: None)
  Receive Date: 20120229
  Receipt Date: 20120221
  Transmission Date: 20120608
  Serious: Yes (Hospitalization)
  Sender: FDA-Public Use
  Company Number: US-US-EMD SERONO, INC.-7018068

PATIENT
  Sex: Female
  Weight: 113 kg

DRUGS (8)
  1. LISINOPRIL [Concomitant]
     Indication: HYPERTENSION
  2. REBIF [Suspect]
     Indication: RELAPSING-REMITTING MULTIPLE SCLEROSIS
     Route: 058
     Dates: start: 20030211
  3. IBUPROFEN TABLETS [Concomitant]
     Indication: PREMEDICATION
  4. GLYBURIDE [Concomitant]
     Indication: DIABETES MELLITUS
  5. HYDROCHLOROTHIAZIDE [Concomitant]
     Indication: HYPERTENSION
  6. DIVALPROEX SODIUM [Concomitant]
     Indication: CONVULSION
  7. METOPROLOL [Concomitant]
     Indication: HYPERTENSION
  8. NEURONTIN [Concomitant]
     Indication: CONVULSION

REACTIONS (9)
  - FATIGUE [None]
  - INJECTION SITE ERYTHEMA [None]
  - MULTIPLE SCLEROSIS RELAPSE [None]
  - ABDOMINAL PAIN [None]
  - INJECTION SITE PAIN [None]
  - NAUSEA [None]
  - GASTROENTERITIS VIRAL [None]
  - HYPOAESTHESIA [None]
  - VOMITING [None]
